FAERS Safety Report 11917584 (Version 2)
Quarter: 2016Q1

REPORT INFORMATION
  Report Type: Spontaneous
  Country: DE (occurrence: DE)
  Receive Date: 20160114
  Receipt Date: 20160211
  Transmission Date: 20160526
  Serious: Yes (Other)
  Sender: FDA-Public Use
  Company Number: DE-BAYER-2016-006059

PATIENT
  Age: 40 Year
  Sex: Female

DRUGS (3)
  1. MIRENA [Suspect]
     Active Substance: LEVONORGESTREL
     Dosage: 20 MCG/24HR, CONT
     Route: 015
     Dates: start: 20151127, end: 20151127
  2. CYTOTEC [Suspect]
     Active Substance: MISOPROSTOL
     Dosage: UNK
     Dates: start: 20151127, end: 20151127
  3. MIRENA [Suspect]
     Active Substance: LEVONORGESTREL
     Dosage: 20 MCG/24HR, CONT
     Route: 015
     Dates: start: 2010, end: 20151127

REACTIONS (7)
  - Procedural pain [None]
  - Complication of device insertion [None]
  - Device difficult to use [None]
  - Uterine spasm [None]
  - Psychological trauma [None]
  - Fear [None]
  - Uterovaginal prolapse [None]

NARRATIVE: CASE EVENT DATE: 2010
